FAERS Safety Report 7639464-9 (Version None)
Quarter: 2011Q3

REPORT INFORMATION
  Report Type: 
  Country: None (occurrence: None)
  Receive Date: 20110727
  Receipt Date: 20110718
  Transmission Date: 20111222
  Serious: Yes (Hospitalization)
  Sender: FDA-Public Use
  Company Number: US-GLAXOSMITHKLINE-A0931761A

PATIENT
  Age: 49 Year
  Sex: Female
  Weight: 91.4 kg

DRUGS (3)
  1. WELLBUTRIN [Suspect]
     Indication: PRODUCT USED FOR UNKNOWN INDICATION
     Dosage: 75MG UNKNOWN
     Route: 048
  2. CONCURRENT MEDICATIONS [Concomitant]
  3. LYRICA [Suspect]
     Indication: PRODUCT USED FOR UNKNOWN INDICATION
     Dosage: 150MG TWICE PER DAY
     Route: 065
     Dates: start: 20090101, end: 20110608

REACTIONS (3)
  - TREATMENT NONCOMPLIANCE [None]
  - DRUG INTERACTION [None]
  - ADVERSE EVENT [None]
